FAERS Safety Report 19229214 (Version 2)
Quarter: 2021Q3

REPORT INFORMATION
  Report Type: Spontaneous
  Country: US (occurrence: US)
  Receive Date: 20210506
  Receipt Date: 20210719
  Transmission Date: 20211014
  Serious: No
  Sender: FDA-Public Use
  Company Number: US-SA-2021SA147734

PATIENT
  Age: 48 Year
  Sex: Male

DRUGS (12)
  1. TACROLIMUS. [Concomitant]
     Active Substance: TACROLIMUS
  2. PIMECROLIMUS. [Concomitant]
     Active Substance: PIMECROLIMUS
  3. ONFI [Concomitant]
     Active Substance: CLOBAZAM
  4. VIMPAT [Concomitant]
     Active Substance: LACOSAMIDE
  5. CLOBETASOL [Concomitant]
     Active Substance: CLOBETASOL
  6. VENTOLIN HFA [Concomitant]
     Active Substance: ALBUTEROL SULFATE
  7. GABITRIL [Concomitant]
     Active Substance: TIAGABINE HYDROCHLORIDE
     Dosage: 10MG
  8. METOPROLOL SUCCINATE. [Concomitant]
     Active Substance: METOPROLOL SUCCINATE
  9. DUPIXENT [Suspect]
     Active Substance: DUPILUMAB
     Indication: DERMATITIS ATOPIC
     Dosage: 300 MG, QOW
     Route: 058
  10. SINGULAIR [Concomitant]
     Active Substance: MONTELUKAST SODIUM
  11. DOXYCYCLINE HYCLATE. [Concomitant]
     Active Substance: DOXYCYCLINE HYCLATE
  12. AMITIZA [Concomitant]
     Active Substance: LUBIPROSTONE

REACTIONS (4)
  - Pain [Unknown]
  - Skin swelling [Unknown]
  - Photosensitivity reaction [Unknown]
  - Therapeutic response shortened [Unknown]

NARRATIVE: CASE EVENT DATE: 20210427
